FAERS Safety Report 17836405 (Version 1)
Quarter: 2020Q2

REPORT INFORMATION
  Report Type: Report from Study
  Country: US (occurrence: US)
  Receive Date: 20200528
  Receipt Date: 20200528
  Transmission Date: 20200714
  Serious: Yes (Hospitalization, Other)
  Sender: FDA-Public Use
  Company Number: US-MYLANLABS-2019M1028240

PATIENT
  Sex: Female
  Weight: 57 kg

DRUGS (4)
  1. GLATIRAMER ACETATE INJECTION [Suspect]
     Active Substance: GLATIRAMER ACETATE
     Dosage: 40 MILLIGRAM, 3XW
  2. GLATIRAMER ACETATE INJECTION [Suspect]
     Active Substance: GLATIRAMER ACETATE
     Indication: RELAPSING-REMITTING MULTIPLE SCLEROSIS
     Dosage: 40 MILLIGRAM, 3XW
     Route: 058
  3. GLATIRAMER ACETATE INJECTION [Suspect]
     Active Substance: GLATIRAMER ACETATE
     Dosage: 40 MILLIGRAM, 3XW
     Route: 058
  4. GLATIRAMER ACETATE INJECTION [Suspect]
     Active Substance: GLATIRAMER ACETATE
     Dosage: 40 MILLIGRAM, 3XW

REACTIONS (13)
  - Balance disorder [Unknown]
  - Injection site mass [Unknown]
  - Injection site reaction [Unknown]
  - Product dose omission [Unknown]
  - Memory impairment [Unknown]
  - Peripheral swelling [Unknown]
  - Injection site pain [Unknown]
  - Fatigue [Unknown]
  - Headache [Unknown]
  - Sinusitis [Unknown]
  - Pneumonia [Unknown]
  - Disorientation [Unknown]
  - Injection site swelling [Unknown]
